FAERS Safety Report 25706218 (Version 1)
Quarter: 2025Q3

REPORT INFORMATION
  Report Type: Spontaneous
  Country: US (occurrence: US)
  Receive Date: 20250820
  Receipt Date: 20250820
  Transmission Date: 20251020
  Serious: No
  Sender: SPRINGWORKS THERAPEUTIC
  Company Number: US-SPRINGWORKS THERAPEUTICS-SW-003043

PATIENT

DRUGS (2)
  1. GOMEKLI [Suspect]
     Active Substance: MIRDAMETINIB
     Indication: Neurofibromatosis
     Route: 048
  2. GOMEKLI [Suspect]
     Active Substance: MIRDAMETINIB
     Route: 048

REACTIONS (2)
  - Nausea [Unknown]
  - Rash [Unknown]
